FAERS Safety Report 6580820-8 (Version None)
Quarter: 2010Q1

REPORT INFORMATION
  Report Type: 
  Country: None (occurrence: None)
  Receive Date: 20100215
  Receipt Date: 20100209
  Transmission Date: 20100710
  Serious: Yes (Hospitalization)
  Sender: FDA-Public Use
  Company Number: US-BIOGENIDEC-2010BI003946

PATIENT
  Age: 0 Day
  Sex: Female
  Weight: 4 kg

DRUGS (1)
  1. TYSABRI [Suspect]
     Indication: DRUG EXPOSURE DURING PREGNANCY
     Route: 064
     Dates: start: 20080313, end: 20090521

REACTIONS (2)
  - FOETAL HEART RATE DECELERATION [None]
  - HEART RATE IRREGULAR [None]
